FAERS Safety Report 15569428 (Version 1)
Quarter: 2018Q4

REPORT INFORMATION
  Report Type: Spontaneous
  Country: US (occurrence: US)
  Receive Date: 20181030
  Receipt Date: 20181030
  Transmission Date: 20190205
  Serious: No
  Sender: FDA-Public Use
  Company Number: None

PATIENT
  Age: 30 Year
  Sex: Female
  Weight: 108 kg

DRUGS (1)
  1. A-HYDROCORT [Suspect]
     Active Substance: HYDROCORTISONE SODIUM SUCCINATE
     Indication: ADDISON^S DISEASE
     Dosage: ?          QUANTITY:2 TABLET(S);?
     Route: 048
     Dates: start: 20181012

REACTIONS (6)
  - Heart rate increased [None]
  - Flushing [None]
  - Palpitations [None]
  - Hyperhidrosis [None]
  - Drug effect incomplete [None]
  - Somnolence [None]

NARRATIVE: CASE EVENT DATE: 20181030
